FAERS Safety Report 5666871-6 (Version None)
Quarter: 2008Q1

REPORT INFORMATION
  Report Type: 
  Country: None (occurrence: None)
  Receive Date: 20080315
  Receipt Date: 20080102
  Transmission Date: 20080703
  Serious: No
  Sender: FDA-Public Use
  Company Number: US-ABBOTT-08P-163-0432295-00

PATIENT
  Sex: Female
  Weight: 59.02 kg

DRUGS (2)
  1. HUMIRA [Suspect]
     Indication: RHEUMATOID ARTHRITIS
     Dosage: PEN
     Route: 058
     Dates: start: 20070501, end: 20071229
  2. HUMIRA [Suspect]
     Dosage: PEN
     Route: 058
     Dates: start: 20070201, end: 20070501

REACTIONS (1)
  - NASOPHARYNGITIS [None]
